FAERS Safety Report 5702896-X (Version None)
Quarter: 2008Q2

REPORT INFORMATION
  Report Type: 
  Country: None (occurrence: None)
  Receive Date: 20080411
  Receipt Date: 20080402
  Transmission Date: 20081010
  Serious: Yes (Death, Other)
  Sender: FDA-Public Use
  Company Number: BE-JNJFOC-20080400957

PATIENT

DRUGS (1)
  1. INFLIXIMAB [Suspect]
     Indication: MYELODYSPLASTIC SYNDROME
     Route: 042

REACTIONS (1)
  - MUCORMYCOSIS [None]
